FAERS Safety Report 15504356 (Version 1)
Quarter: 2018Q4

REPORT INFORMATION
  Report Type: Spontaneous
  Country: US (occurrence: US)
  Receive Date: 20181009
  Receipt Date: 20181009
  Transmission Date: 20190205
  Serious: Yes (Other)
  Sender: FDA-Public Use
  Company Number: None

PATIENT
  Age: 75 Year
  Sex: Female
  Weight: 90 kg

DRUGS (6)
  1. RAMIPRIL. [Concomitant]
     Active Substance: RAMIPRIL
  2. CARVIDILOL [Concomitant]
  3. METFORMIN [Concomitant]
     Active Substance: METFORMIN HYDROCHLORIDE
  4. TURMERIC [Concomitant]
     Active Substance: HERBALS\TURMERIC
  5. SMILEACTIVES POWER WHITENING GEL [Suspect]
     Active Substance: HYDROGEN PEROXIDE
     Indication: DENTAL COSMETIC PROCEDURE
     Dosage: ?          OTHER STRENGTH:DON^T KNOW;QUANTITY:2 GTT DROP(S);?
     Route: 048
     Dates: start: 20181005, end: 20181007
  6. COQ10 [Concomitant]
     Active Substance: UBIDECARENONE

REACTIONS (4)
  - Application site pain [None]
  - Application site scab [None]
  - Product use complaint [None]
  - Application site swelling [None]

NARRATIVE: CASE EVENT DATE: 20181007
